FAERS Safety Report 6999785-X (Version None)
Quarter: 2010Q3

REPORT INFORMATION
  Report Type: 
  Country: None (occurrence: None)
  Receive Date: 20100920
  Receipt Date: 20100909
  Transmission Date: 20110219
  Serious: Yes (Other)
  Sender: FDA-Public Use
  Company Number: PHFR2010GB02056

PATIENT
  Sex: Female

DRUGS (4)
  1. CLOZARIL [Suspect]
     Indication: SCHIZOPHRENIA
     Dosage: UNK
     Route: 048
     Dates: start: 20080227
  2. CLOZARIL [Suspect]
     Dosage: 350 MG, UNK
     Route: 048
     Dates: start: 20100714
  3. DIAZEPAM [Concomitant]
     Dosage: 2 MG, QD
     Dates: start: 20100707, end: 20100721
  4. AMISULPRIDE [Concomitant]
     Dosage: 800 MG, UNK

REACTIONS (7)
  - HAEMOGLOBIN DECREASED [None]
  - MONOCYTE COUNT INCREASED [None]
  - NEUTROPHIL COUNT INCREASED [None]
  - PLATELET COUNT INCREASED [None]
  - RENAL CANCER [None]
  - SURGERY [None]
  - WHITE BLOOD CELL COUNT INCREASED [None]
